FAERS Safety Report 6870738-5 (Version None)
Quarter: 2010Q3

REPORT INFORMATION
  Report Type: 
  Country: None (occurrence: None)
  Receive Date: 20100723
  Receipt Date: 20100709
  Transmission Date: 20110219
  Serious: Yes (Other)
  Sender: FDA-Public Use
  Company Number: PHHY2010FR35256

PATIENT
  Sex: Female
  Weight: 75 kg

DRUGS (9)
  1. RASILEZ [Suspect]
     Indication: HYPERTENSION
     Dosage: 150 MG
     Dates: start: 20100303, end: 20100520
  2. ISOPTIN [Concomitant]
     Indication: HYPERTENSION
     Dosage: 1 DF (240 MG), DAILY
  3. RILMENIDINE [Concomitant]
     Indication: HYPERTENSION
     Dosage: 1 DF, DAILY
  4. TENSTATEN [Concomitant]
     Indication: HYPERTENSION
     Dosage: 1 DF, DAILY
  5. LEVOTHYROXINE SODIUM [Concomitant]
     Indication: HYPOTHYROIDISM
     Dosage: 1 DF (100 MG), DAILY
  6. PRAXILENE [Concomitant]
     Indication: RAYNAUD'S PHENOMENON
     Dosage: 3 DF (200 MG), DAILY
  7. TAHOR [Concomitant]
     Indication: DYSLIPIDAEMIA
     Dosage: 1 DF (10 MG), DAILY
  8. LEXOMIL [Concomitant]
  9. FUROSEMIDE [Concomitant]

REACTIONS (9)
  - ATRIOVENTRICULAR BLOCK FIRST DEGREE [None]
  - CREPITATIONS [None]
  - DYSPNOEA EXERTIONAL [None]
  - ERYTHEMA [None]
  - FACE OEDEMA [None]
  - FATIGUE [None]
  - LEFT VENTRICULAR HYPERTROPHY [None]
  - OEDEMA PERIPHERAL [None]
  - PAIN [None]
